FAERS Safety Report 4529313-X (Version None)
Quarter: 2004Q4

REPORT INFORMATION
  Report Type: 
  Country: None (occurrence: None)
  Receive Date: 20041214
  Receipt Date: 20041201
  Transmission Date: 20050328
  Serious: Yes (Hospitalization, Other)
  Sender: FDA-Public Use
  Company Number: 2004104224

PATIENT
  Age: 63 Year
  Sex: Female

DRUGS (6)
  1. NEURONTIN [Suspect]
     Indication: ILL-DEFINED DISORDER
     Dosage: 900 MG (300 MG, 3 IN 1 D), ORAL
     Route: 048
     Dates: start: 20020301, end: 20040912
  2. TROXERUTIN (TROXERUTIN) [Suspect]
     Indication: ILL-DEFINED DISORDER
     Dosage: ORAL
     Route: 048
     Dates: start: 20040515, end: 20040824
  3. ZOLPIDEM TARTRATE [Suspect]
     Indication: ILL-DEFINED DISORDER
     Dosage: 10 MG (10 MG, DAILY), ORAL
     Route: 048
  4. IRBESARTAN [Suspect]
     Indication: ILL-DEFINED DISORDER
     Dosage: ORAL
     Route: 048
     Dates: end: 20040824
  5. TRAMADOL HCL [Suspect]
     Indication: ILL-DEFINED DISORDER
     Dosage: 300 MG (150 MG, 2 IN 1 D), ORAL
     Route: 048
     Dates: start: 20040720, end: 20040912
  6. CAFFEINE / OPIUM/ PARACETAMOL (CAFFEINE, OPIUM TINCTURE, PARACETAMOL) [Suspect]
     Indication: ILL-DEFINED DISORDER
     Dosage: ORAL
     Route: 048
     Dates: start: 20040515, end: 20040824

REACTIONS (7)
  - ANTINUCLEAR ANTIBODY POSITIVE [None]
  - EPSTEIN-BARR VIRUS INFECTION [None]
  - ERYTHEMA INFECTIOSUM [None]
  - HAEMATOMA [None]
  - PARVOVIRUS B19 SEROLOGY POSITIVE [None]
  - PLATELET DISORDER [None]
  - THROMBOCYTOPENIC PURPURA [None]
